FAERS Safety Report 7269004-8 (Version None)
Quarter: 2011Q1

REPORT INFORMATION
  Report Type: 
  Country: None (occurrence: None)
  Receive Date: 20110202
  Receipt Date: 20110121
  Transmission Date: 20110831
  Serious: Yes (Hospitalization, Other)
  Sender: FDA-Public Use
  Company Number: US-BIOGENIDEC-2009BI033552

PATIENT
  Age: 59 Year
  Sex: Male

DRUGS (1)
  1. TYSABRI [Suspect]
     Indication: MULTIPLE SCLEROSIS
     Route: 042
     Dates: start: 20070221

REACTIONS (5)
  - BASAL CELL CARCINOMA [None]
  - PROSTATE CANCER [None]
  - WEIGHT INCREASED [None]
  - LUNG NEOPLASM MALIGNANT [None]
  - MUSCULAR WEAKNESS [None]
